FAERS Safety Report 7176377-3 (Version None)
Quarter: 2010Q4

REPORT INFORMATION
  Report Type: 
  Country: None (occurrence: None)
  Receive Date: 20101215
  Receipt Date: 20101215
  Transmission Date: 20110411
  Serious: Yes (Other)
  Sender: FDA-Public Use
  Company Number: None

PATIENT
  Age: 66 Year
  Sex: Female
  Weight: 56.6996 kg

DRUGS (1)
  1. HUMALOG KWIKPEN [Suspect]
     Indication: DIABETES MELLITUS
     Dosage: INJECT 20 UNITS DAILY

REACTIONS (2)
  - DEVICE MALFUNCTION [None]
  - SYRINGE ISSUE [None]
